FAERS Safety Report 5431285-0 (Version None)
Quarter: 2007Q3

REPORT INFORMATION
  Report Type: 
  Country: None (occurrence: None)
  Receive Date: 20070731
  Receipt Date: 20070516
  Transmission Date: 20080115
  Serious: No
  Sender: FDA-Public Use
  Company Number: US200705002768

PATIENT
  Age: 72 Year
  Sex: Female

DRUGS (17)
  1. BYETTA [Suspect]
     Indication: TYPE 2 DIABETES MELLITUS
     Dosage: 5 UG, DAILY (1/D), SUBCUTANEOUS
     Route: 058
     Dates: start: 20070508, end: 20070509
  2. BYETTA [Suspect]
     Indication: TYPE 2 DIABETES MELLITUS
     Dosage: 5 UG, DAILY (1/D), SUBCUTANEOUS
     Route: 058
     Dates: start: 20070510
  3. BYETTA [Suspect]
     Indication: TYPE 2 DIABETES MELLITUS
     Dosage: 5 UG, DAILY (1/D), SUBCUTANEOUS
     Route: 058
     Dates: start: 20070515
  4. GLUCOTROL [Concomitant]
  5. ACTOS [Concomitant]
  6. METFORMIN HCL [Concomitant]
  7. GLYBURIDE [Concomitant]
  8. PREVACID [Concomitant]
  9. ATENOLOL [Concomitant]
  10. FUROSEMIDE [Concomitant]
  11. ALOPURINOL (ALLOPURINOL) [Concomitant]
  12. ZYRTEC [Concomitant]
  13. FOLTX (CYANOCOBALAMIN, FOLIC ACID, PYRIDOXINE) [Concomitant]
  14. COUMADIN [Concomitant]
  15. LEXAPRO [Concomitant]
  16. ADVAIR DISKUS 100/50 [Concomitant]
  17. CADUET (AMLODIPINE BESILATE, ATORVASTATIN CALCIUM) [Concomitant]

REACTIONS (13)
  - ASTHENIA [None]
  - BLOOD GLUCOSE INCREASED [None]
  - DECREASED APPETITE [None]
  - DYSPEPSIA [None]
  - ERUCTATION [None]
  - FEELING HOT [None]
  - HEADACHE [None]
  - HYPERHIDROSIS [None]
  - HYPOGLYCAEMIA [None]
  - INSOMNIA [None]
  - NAUSEA [None]
  - PRESYNCOPE [None]
  - VOMITING [None]
